FAERS Safety Report 7108125-7 (Version None)
Quarter: 2010Q4

REPORT INFORMATION
  Report Type: 
  Country: None (occurrence: None)
  Receive Date: 20101115
  Receipt Date: 20101115
  Transmission Date: 20110411
  Serious: Yes (Other)
  Sender: FDA-Public Use
  Company Number: None

PATIENT
  Age: 75 Year
  Sex: Female
  Weight: 51.7101 kg

DRUGS (2)
  1. SPIRIVA [Suspect]
     Indication: DYSPNOEA
     Dosage: 1 CAP - 18 MCG 1 A DAY INHALE
     Route: 055
     Dates: start: 20101014, end: 20101017
  2. SPIRIVA [Suspect]

REACTIONS (3)
  - DYSPHONIA [None]
  - THROAT IRRITATION [None]
  - TONGUE ERUPTION [None]
